FAERS Safety Report 26126492 (Version 2)
Quarter: 2025Q4

REPORT INFORMATION
  Report Type: Spontaneous
  Country: EU (occurrence: EU)
  Receive Date: 20251205
  Receipt Date: 20251229
  Transmission Date: 20260117
  Serious: Yes (Other)
  Sender: NOVARTIS
  Company Number: EU-002147023-NVSC2025DE185346

PATIENT
  Sex: Male

DRUGS (1)
  1. TASIGNA [Suspect]
     Active Substance: NILOTINIB
     Indication: Chronic myeloid leukaemia
     Dosage: UNK
     Route: 065
     Dates: start: 2015, end: 2025

REACTIONS (8)
  - Transient ischaemic attack [Unknown]
  - Vascular occlusion [Unknown]
  - Vascular stent occlusion [Unknown]
  - Carotid artery occlusion [Unknown]
  - Alopecia [Unknown]
  - Myalgia [Unknown]
  - Arthralgia [Unknown]
  - Decreased appetite [Unknown]

NARRATIVE: CASE EVENT DATE: 20170101
